FAERS Safety Report 9852189 (Version 2)
Quarter: 2014Q1

REPORT INFORMATION
  Report Type: Spontaneous
  Country: US (occurrence: US)
  Receive Date: 20140129
  Receipt Date: 20140129
  Transmission Date: 20141002
  Serious: Yes (Life-Threatening, Hospitalization)
  Sender: FDA-Public Use
  Company Number: US-BRACCO-009661

PATIENT
  Age: 52 Year
  Sex: Female
  Weight: 83 kg

DRUGS (5)
  1. MORPHINE [Concomitant]
     Dosage: ADMINISTERED PRIOR TO MRI STUDY.
     Dates: start: 20130610, end: 20130610
  2. SUCCINYLCHOLINE [Concomitant]
     Dosage: ADMINISTERED PRIOR TO MRI STUDY.
     Dates: start: 20130610, end: 20130610
  3. MULTIHANCE [Suspect]
     Indication: NUCLEAR MAGNETIC RESONANCE IMAGING BRAIN
     Route: 042
     Dates: start: 20130610, end: 20130610
  4. ZANTAC [Concomitant]
  5. FENTANYL [Concomitant]
     Dosage: ADMINISTERED PRIOR TO MRI STUDY.
     Dates: start: 20130610, end: 20130610

REACTIONS (1)
  - Anaphylactic reaction [Recovered/Resolved]
